FAERS Safety Report 13459324 (Version 1)
Quarter: 2017Q2

REPORT INFORMATION
  Report Type: Spontaneous
  Country: FR (occurrence: FR)
  Receive Date: 20170419
  Receipt Date: 20170419
  Transmission Date: 20170830
  Serious: Yes (Life-Threatening, Other)
  Sender: FDA-Public Use
  Company Number: FR-ALLERGAN-1714794US

PATIENT
  Age: 19 Year
  Sex: Male

DRUGS (1)
  1. BOTOX [Suspect]
     Active Substance: ONABOTULINUMTOXINA
     Indication: HYPERTONIA
     Dosage: 2000 UNITS, SINGLE
     Route: 030
     Dates: start: 20170329, end: 20170329

REACTIONS (8)
  - Off label use [Unknown]
  - Abdominal pain [Unknown]
  - Large intestinal obstruction [Unknown]
  - Acute kidney injury [Unknown]
  - Respiratory distress [Unknown]
  - Dehydration [Unknown]
  - Nausea [Unknown]
  - Vomiting [Unknown]

NARRATIVE: CASE EVENT DATE: 20170330
